FAERS Safety Report 14891593 (Version 2)
Quarter: 2018Q2

REPORT INFORMATION
  Report Type: Spontaneous
  Country: RO (occurrence: RO)
  Receive Date: 20180514
  Receipt Date: 20180517
  Transmission Date: 20180711
  Serious: Yes (Other)
  Sender: FDA-Public Use
  Company Number: RO-SA-2018SA135179

PATIENT
  Sex: Female

DRUGS (11)
  1. SOLOSTAR [Suspect]
     Active Substance: DEVICE
     Indication: TYPE 2 DIABETES MELLITUS
     Dates: start: 20180507
  2. SIOFOR [Concomitant]
     Active Substance: METFORMIN HYDROCHLORIDE
     Indication: TYPE 2 DIABETES MELLITUS
     Route: 065
  3. MILGAMMA [Concomitant]
     Active Substance: VITAMIN B
     Route: 065
  4. TERTENSIF [Concomitant]
     Active Substance: INDAPAMIDE
     Route: 065
  5. PREDUCTAL [Concomitant]
     Active Substance: TRIMETAZIDINE DIHYDROCHLORIDE
     Route: 065
  6. SERMION [Concomitant]
     Active Substance: NICERGOLINE
     Route: 065
  7. BROMAZEPAM [Concomitant]
     Active Substance: BROMAZEPAM
     Route: 065
  8. TOUJEO [Suspect]
     Active Substance: INSULIN GLARGINE
     Indication: TYPE 2 DIABETES MELLITUS
     Route: 051
     Dates: start: 20180507
  9. CONCOR [Concomitant]
     Active Substance: BISOPROLOL FUMARATE
     Route: 065
  10. LANTUS [Concomitant]
     Active Substance: INSULIN GLARGINE
  11. PRESTARIUM [Concomitant]
     Active Substance: PERINDOPRIL
     Route: 065

REACTIONS (1)
  - Anaphylactic shock [Recovered/Resolved]

NARRATIVE: CASE EVENT DATE: 20180507
